APPROVED DRUG PRODUCT: ICLEVIA
Active Ingredient: ETHINYL ESTRADIOL; LEVONORGESTREL
Strength: 0.03MG;0.15MG
Dosage Form/Route: TABLET;ORAL
Application: A206850 | Product #001 | TE Code: AB
Applicant: AUROBINDO PHARMA LTD
Approved: Jun 29, 2018 | RLD: No | RS: No | Type: RX